FAERS Safety Report 9615627 (Version 1)
Quarter: 2013Q4

REPORT INFORMATION
  Report Type: Spontaneous
  Country: US (occurrence: US)
  Receive Date: 20131011
  Receipt Date: 20131011
  Transmission Date: 20140711
  Serious: No
  Sender: FDA-Public Use
  Company Number: US-BAYER-2013-122958

PATIENT
  Sex: Female

DRUGS (1)
  1. ALEVE CAPLET [Suspect]
     Dosage: UNK
     Route: 048
     Dates: start: 20130419, end: 20131007

REACTIONS (2)
  - Dizziness [Recovered/Resolved]
  - Incorrect drug administration duration [None]
